FAERS Safety Report 9180621 (Version 2)
Quarter: 2013Q3

REPORT INFORMATION
  Report Type: Spontaneous
  Country: PT (occurrence: PT)
  Receive Date: 20130322
  Receipt Date: 20130930
  Transmission Date: 20140515
  Serious: Yes (Life-Threatening, Other)
  Sender: FDA-Public Use
  Company Number: PT-009507513-1303PRT008774

PATIENT
  Age: 56 Year
  Sex: Male

DRUGS (1)
  1. BRIDION [Suspect]
     Indication: NEUROMUSCULAR BLOCKADE REVERSAL
     Dosage: 16 MG/KG, ONCE
     Dates: start: 20130313, end: 20130313

REACTIONS (1)
  - Cardiac arrest [Recovered/Resolved]
